FAERS Safety Report 24086713 (Version 1)
Quarter: 2024Q3

REPORT INFORMATION
  Report Type: Other
  Country: FR (occurrence: FR)
  Receive Date: 20240713
  Receipt Date: 20240713
  Transmission Date: 20241017
  Serious: Yes (Hospitalization)
  Sender: ZYDUS PHARM
  Company Number: None

PATIENT

DRUGS (2)
  1. ACETAMINOPHEN [Suspect]
     Active Substance: ACETAMINOPHEN
     Indication: Product used for unknown indication
     Dosage: 6 GRAM
     Route: 048
     Dates: start: 20231224, end: 20231225
  2. COCAINE [Suspect]
     Active Substance: COCAINE
     Indication: Product used for unknown indication
     Dosage: 1 GRAM
     Dates: start: 20231226, end: 20231227

REACTIONS (5)
  - Coma scale abnormal [Recovering/Resolving]
  - Hepatitis acute [Recovering/Resolving]
  - Metabolic acidosis [Recovering/Resolving]
  - Substance use disorder [Recovering/Resolving]
  - Toxicity to various agents [Recovering/Resolving]

NARRATIVE: CASE EVENT DATE: 20231224
